FAERS Safety Report 9659812 (Version 2)
Quarter: 2014Q2

REPORT INFORMATION
  Report Type: Spontaneous
  Country: DE (occurrence: DE)
  Receive Date: 20131031
  Receipt Date: 20140522
  Transmission Date: 20141212
  Serious: Yes (Hospitalization)
  Sender: FDA-Public Use
  Company Number: DE-JNJFOC-20131017891

PATIENT
  Sex: Male
  Weight: 75 kg

DRUGS (13)
  1. XARELTO [Suspect]
     Indication: EMBOLISM VENOUS
     Route: 048
     Dates: start: 20130812
  2. XARELTO [Suspect]
     Indication: EMBOLISM VENOUS
     Route: 048
     Dates: start: 201308, end: 20130811
  3. XARELTO [Suspect]
     Indication: DEEP VEIN THROMBOSIS
     Route: 048
     Dates: start: 20130812
  4. XARELTO [Suspect]
     Indication: DEEP VEIN THROMBOSIS
     Route: 048
     Dates: start: 201308, end: 20130811
  5. SIMVASTATIN [Concomitant]
     Route: 065
  6. SEROQUEL [Concomitant]
     Route: 065
  7. BISOPROLOL [Concomitant]
     Route: 065
  8. SPIRO COMP [Concomitant]
     Dosage: UNKNOWN DOSAGE 1/2-0-0
     Route: 065
  9. DIGITOXIN [Concomitant]
     Route: 065
  10. NOVALGIN [Concomitant]
     Dosage: 30GTT
     Route: 065
  11. TILIDIN COMP [Concomitant]
     Dosage: UNSPECIFIED DOSAGE: 1-0-1
     Route: 065
  12. INSULIN HUMAN [Concomitant]
     Dosage: 22-0-28 IE
     Route: 058
  13. FLUMETASONE PIVALATE [Concomitant]
     Route: 061

REACTIONS (1)
  - Drug-induced liver injury [Recovering/Resolving]
